FAERS Safety Report 4655852-7 (Version None)
Quarter: 2005Q2

REPORT INFORMATION
  Report Type: 
  Country: None (occurrence: None)
  Receive Date: 20050505
  Receipt Date: 20050422
  Transmission Date: 20051028
  Serious: Yes (Other)
  Sender: FDA-Public Use
  Company Number: 2005065410

PATIENT
  Sex: Male
  Weight: 62 kg

DRUGS (3)
  1. NEURONTIN [Suspect]
     Indication: ARTHRALGIA
     Dates: start: 19970101
  2. MORPHINE [Concomitant]
  3. AMITRIPTYLINE HYDROCHLORIDE [Concomitant]

REACTIONS (10)
  - ABNORMAL BEHAVIOUR [None]
  - APHASIA [None]
  - BRAIN SCAN ABNORMAL [None]
  - CONVULSION [None]
  - DYSGEUSIA [None]
  - DYSGRAPHIA [None]
  - ORAL INTAKE REDUCED [None]
  - PERSONALITY CHANGE DUE TO A GENERAL MEDICAL CONDITION [None]
  - READING DISORDER [None]
  - WEIGHT DECREASED [None]
